FAERS Safety Report 5869617-1 (Version None)
Quarter: 2008Q3

REPORT INFORMATION
  Report Type: 
  Country: None (occurrence: None)
  Receive Date: 20080904
  Receipt Date: 20080624
  Transmission Date: 20090109
  Serious: No
  Sender: FDA-Public Use
  Company Number: US-KINGPHARMUSA00001-K200800754

PATIENT

DRUGS (5)
  1. CYTOMEL [Suspect]
     Indication: HYPERTHYROIDISM
     Dosage: 5 MCG, PRN
  2. LEVOXYL [Suspect]
     Indication: HYPERTHYROIDISM
     Dosage: 75 MCG, QD
     Route: 048
  3. GLUCOSAMINE [Concomitant]
     Indication: ARTHRITIS
     Dosage: UNK, QD
     Route: 048
  4. VITAMIN TAB [Concomitant]
     Indication: SUPPLEMENTATION THERAPY
     Dosage: UNK, QD
     Route: 048
  5. PREMARIN [Concomitant]
     Indication: HORMONE REPLACEMENT THERAPY
     Dosage: .03 UNK, PRN
     Route: 048

REACTIONS (2)
  - BLOOD THYROID STIMULATING HORMONE INCREASED [None]
  - FATIGUE [None]
